FAERS Safety Report 6599489-1 (Version None)
Quarter: 2010Q1

REPORT INFORMATION
  Report Type: 
  Country: None (occurrence: None)
  Receive Date: 20100224
  Receipt Date: 20100216
  Transmission Date: 20100710
  Serious: Yes (Other)
  Sender: FDA-Public Use
  Company Number: US-JNJFOC-20100207424

PATIENT
  Sex: Female
  Weight: 75.75 kg

DRUGS (20)
  1. REMICADE [Suspect]
     Indication: CROHN'S DISEASE
     Route: 042
  2. REMICADE [Suspect]
     Route: 042
  3. REMICADE [Suspect]
     Route: 042
  4. FLEXERIL [Concomitant]
     Indication: FIBROMYALGIA
  5. COLCHICINE [Concomitant]
     Indication: GOUT
  6. LISINOPRIL [Concomitant]
  7. VICODIN [Concomitant]
     Indication: PAIN
  8. NAPROXEN [Concomitant]
     Indication: GOUT
  9. EFFEXOR XR [Concomitant]
     Indication: ANTIDEPRESSANT THERAPY
  10. ASACOL [Concomitant]
     Indication: CROHN'S DISEASE
  11. SYNTHROID [Concomitant]
     Indication: HYPOTHYROIDISM
  12. TOPROL-XL [Concomitant]
  13. BENTYL [Concomitant]
     Indication: CROHN'S DISEASE
  14. KLONOPIN [Concomitant]
     Indication: RESTLESS LEGS SYNDROME
  15. COLESTID [Concomitant]
     Indication: BLOOD CHOLESTEROL INCREASED
  16. ACTONEL [Concomitant]
     Indication: OSTEOPOROSIS
  17. FLONASE [Concomitant]
     Indication: SINUS DISORDER
  18. LIDODERM [Concomitant]
     Indication: ARTHRALGIA
  19. NUMOISYN [Concomitant]
     Indication: DRY MOUTH
  20. VOLTAREN [Concomitant]
     Indication: PAIN

REACTIONS (2)
  - MENINGIOMA [None]
  - MIGRAINE [None]
